FAERS Safety Report 14787214 (Version 4)
Quarter: 2018Q2

REPORT INFORMATION
  Report Type: Spontaneous
  Country: US (occurrence: US)
  Receive Date: 20180421
  Receipt Date: 20180628
  Transmission Date: 20180711
  Serious: No
  Sender: FDA-Public Use
  Company Number: US-VIFOR (INTERNATIONAL) INC.-VIT-2018-03709

PATIENT
  Sex: Male

DRUGS (15)
  1. ACETYLSALICYLIC ACID [Concomitant]
     Active Substance: ASPIRIN
  2. FLONASE [Concomitant]
     Active Substance: FLUTICASONE PROPIONATE
  3. LASIX [Concomitant]
     Active Substance: FUROSEMIDE
  4. VELTASSA [Suspect]
     Active Substance: PATIROMER
     Dates: start: 2018, end: 2018
  5. VELTASSA [Suspect]
     Active Substance: PATIROMER
     Dates: start: 20180313
  6. LOSARTAN POTASSIUM. [Concomitant]
     Active Substance: LOSARTAN POTASSIUM
  7. PARACETAMOL~~OXYCODONE HYDROCHLORIDE [Concomitant]
  8. FOLIC ACID. [Concomitant]
     Active Substance: FOLIC ACID
  9. GLIMEPIRIDE. [Concomitant]
     Active Substance: GLIMEPIRIDE
  10. METHOTREXATE. [Concomitant]
     Active Substance: METHOTREXATE
  11. CARVEDILOL. [Concomitant]
     Active Substance: CARVEDILOL
  12. COLECALCIFEROL [Concomitant]
     Active Substance: CHOLECALCIFEROL
  13. VELTASSA [Suspect]
     Active Substance: PATIROMER
     Indication: HYPERKALAEMIA
     Route: 048
     Dates: start: 20180403
  14. ATORVASTATIN CALCIUM. [Concomitant]
     Active Substance: ATORVASTATIN CALCIUM
  15. COLECALCIFEROL~~CALCIUM CITRATE [Concomitant]

REACTIONS (4)
  - Oedema peripheral [Unknown]
  - Dyspnoea [Unknown]
  - Joint swelling [Unknown]
  - Inappropriate schedule of drug administration [Unknown]

NARRATIVE: CASE EVENT DATE: 2018
